FAERS Safety Report 13665528 (Version 2)
Quarter: 2017Q3

REPORT INFORMATION
  Report Type: Report from Study
  Country: US (occurrence: US)
  Receive Date: 20170619
  Receipt Date: 20170719
  Transmission Date: 20171127
  Serious: Yes (Hospitalization, Other)
  Sender: FDA-Public Use
  Company Number: US-ARIAD PHARMACEUTICALS, INC-2017US008337

PATIENT
  Sex: Male

DRUGS (2)
  1. ICLUSIG [Suspect]
     Active Substance: PONATINIB
     Dosage: 7.5 MG, QD
     Route: 048
  2. ICLUSIG [Suspect]
     Active Substance: PONATINIB
     Indication: CHRONIC MYELOID LEUKAEMIA RECURRENT
     Dosage: 30 MG, QD
     Route: 048
     Dates: start: 20140325

REACTIONS (15)
  - Escherichia sepsis [Unknown]
  - Hospitalisation [Unknown]
  - Arthritis [Unknown]
  - Gait disturbance [Unknown]
  - Bladder outlet obstruction [Unknown]
  - Hypertension [Unknown]
  - Bladder catheterisation [Unknown]
  - Heart sounds abnormal [Unknown]
  - Wrong technique in product usage process [Unknown]
  - Prostatomegaly [Unknown]
  - Prostate infection [Unknown]
  - Breath sounds abnormal [Unknown]
  - Dyspnoea [Unknown]
  - Cystitis [Unknown]
  - Urinary retention [Unknown]
